FAERS Safety Report 6259909-9 (Version None)
Quarter: 2009Q3

REPORT INFORMATION
  Report Type: 
  Country: None (occurrence: None)
  Receive Date: 20090708
  Receipt Date: 20090624
  Transmission Date: 20100115
  Serious: Yes (Hospitalization, Other)
  Sender: FDA-Public Use
  Company Number: PHHY2009BR25765

PATIENT
  Age: 61 Year
  Sex: Female
  Weight: 76 kg

DRUGS (1)
  1. DIOVAN [Suspect]
     Indication: HYPERTENSION
     Dosage: 1 DF, BID
     Route: 048

REACTIONS (5)
  - ADRENAL DISORDER [None]
  - ASTHMA [None]
  - BLOOD POTASSIUM DECREASED [None]
  - HYPERTENSION [None]
  - SURGERY [None]
